FAERS Safety Report 12629420 (Version 1)
Quarter: 2016Q3

REPORT INFORMATION
  Report Type: Spontaneous
  Country: US (occurrence: US)
  Receive Date: 20160808
  Receipt Date: 20160808
  Transmission Date: 20161109
  Serious: No
  Sender: FDA-Public Use
  Company Number: US-BAYER-2016-152203

PATIENT
  Age: 78 Year
  Sex: Female
  Weight: 74.83 kg

DRUGS (1)
  1. ALEVE [Suspect]
     Active Substance: NAPROXEN SODIUM
     Indication: ARTHRITIS
     Route: 048

REACTIONS (4)
  - Product use issue [None]
  - Expired product administered [None]
  - Expired product administered [None]
  - Drug ineffective [None]

NARRATIVE: CASE EVENT DATE: 20160801
